FAERS Safety Report 13527594 (Version 1)
Quarter: 2017Q2

REPORT INFORMATION
  Report Type: Spontaneous
  Country: CZ (occurrence: CZ)
  Receive Date: 20170509
  Receipt Date: 20170509
  Transmission Date: 20170830
  Serious: No
  Sender: FDA-Public Use
  Company Number: CZ-009507513-1604CZE015487

PATIENT
  Sex: Male

DRUGS (1)
  1. ELOCOM [Suspect]
     Active Substance: MOMETASONE FUROATE
     Dosage: UNK
     Route: 047
     Dates: start: 20160420, end: 20160420

REACTIONS (2)
  - Eye irritation [Recovered/Resolved]
  - Incorrect route of drug administration [Unknown]

NARRATIVE: CASE EVENT DATE: 20160420
